FAERS Safety Report 8312341-6 (Version None)
Quarter: 2012Q2

REPORT INFORMATION
  Report Type: 
  Country: None (occurrence: None)
  Receive Date: 20120425
  Receipt Date: 20120417
  Transmission Date: 20120825
  Serious: Yes (Other)
  Sender: FDA-Public Use
  Company Number: DE-B.I. PHARMACEUTICALS,INC./RIDGEFIELD-2012-DE-01082DE

PATIENT
  Sex: Male

DRUGS (1)
  1. AGGRENOX [Suspect]
     Dosage: STRENGTH: 200/25 MG

REACTIONS (2)
  - DYSPNOEA [None]
  - ANGINA PECTORIS [None]
